FAERS Safety Report 8547386 (Version 6)
Quarter: 2013Q4

REPORT INFORMATION
  Report Type: Spontaneous
  Country: JP (occurrence: JP)
  Receive Date: 20120504
  Receipt Date: 20131011
  Transmission Date: 20140711
  Serious: Yes (Death, Other)
  Sender: FDA-Public Use
  Company Number: JP-ASTRAZENECA-2012SE27860

PATIENT
  Age: 71 Year
  Sex: Male
  Weight: 42.2 kg

DRUGS (13)
  1. SEROQUEL [Suspect]
     Indication: DELIRIUM
     Route: 048
     Dates: start: 20120403
  2. SEROQUEL [Suspect]
     Indication: INSOMNIA
     Route: 048
     Dates: start: 20120403
  3. SEROQUEL [Suspect]
     Indication: DELIRIUM
     Route: 048
     Dates: start: 20120404, end: 20120416
  4. SEROQUEL [Suspect]
     Indication: INSOMNIA
     Route: 048
     Dates: start: 20120404, end: 20120416
  5. SEROQUEL [Suspect]
     Indication: DELIRIUM
     Route: 048
     Dates: start: 20120419, end: 20120425
  6. SEROQUEL [Suspect]
     Indication: INSOMNIA
     Route: 048
     Dates: start: 20120419, end: 20120425
  7. SERTRALINE HYDROCHLORIDE [Concomitant]
     Indication: DEPRESSIVE SYMPTOM
     Route: 065
     Dates: start: 20120420, end: 20120425
  8. DEPAS [Concomitant]
     Indication: INSOMNIA
     Route: 065
     Dates: start: 20120404, end: 20120425
  9. RISPERDAL [Concomitant]
     Indication: DELIRIUM
     Route: 048
     Dates: start: 20120418, end: 20120425
  10. URSO [Concomitant]
     Indication: HEPATIC FUNCTION ABNORMAL
     Dates: start: 20120412, end: 20120425
  11. GASMOTIN [Concomitant]
     Indication: HEPATIC FUNCTION ABNORMAL
     Dates: start: 20120410, end: 20120412
  12. GASMOTIN [Concomitant]
     Indication: GASTROINTESTINAL HYPOMOTILITY
     Dates: start: 20120410, end: 20120412
  13. FUNGIZONE [Concomitant]
     Indication: FUNGAL INFECTION
     Dates: start: 20120410, end: 20120415

REACTIONS (5)
  - Pneumonia aspiration [Fatal]
  - Hypoglycaemia [Fatal]
  - Hepatic function abnormal [Recovering/Resolving]
  - Fungal infection [Recovering/Resolving]
  - Off label use [Unknown]
